FAERS Safety Report 16318294 (Version 1)
Quarter: 2019Q2

REPORT INFORMATION
  Report Type: Spontaneous
  Country: US (occurrence: US)
  Receive Date: 20190516
  Receipt Date: 20190516
  Transmission Date: 20190711
  Serious: No
  Sender: FDA-Public Use
  Company Number: US-HIKMA PHARMACEUTICALS USA INC.-US-H14001-18-07909

PATIENT
  Age: 56 Year
  Sex: Female

DRUGS (1)
  1. LEUCOVORIN CALCIUM INJECTION [Suspect]
     Active Substance: LEUCOVORIN CALCIUM
     Indication: PRODUCT USED FOR UNKNOWN INDICATION
     Route: 042
     Dates: start: 2015, end: 2018

REACTIONS (5)
  - Heart rate decreased [Unknown]
  - Headache [Unknown]
  - Flushing [Unknown]
  - Nasal congestion [Unknown]
  - Heart rate increased [Unknown]
